FAERS Safety Report 18895529 (Version 1)
Quarter: 2021Q1

REPORT INFORMATION
  Report Type: Not Available
  Country: US (occurrence: US)
  Receive Date: 20210216
  Receipt Date: 20210216
  Transmission Date: 20210420
  Serious: No
  Sender: FDA-Public Use
  Company Number: US-NEUROCRINE BIOSCIENCES INC.-2021NBI00505

PATIENT
  Age: 65 Year
  Sex: Female

DRUGS (1)
  1. INGREZZA [Suspect]
     Active Substance: VALBENAZINE
     Indication: TARDIVE DYSKINESIA
     Route: 048
     Dates: start: 20201231

REACTIONS (5)
  - Dyskinesia [Unknown]
  - Stress [Unknown]
  - Weight increased [Unknown]
  - Insomnia [Unknown]
  - Discomfort [Unknown]

NARRATIVE: CASE EVENT DATE: 2021
